FAERS Safety Report 6596748-3 (Version None)
Quarter: 2010Q1

REPORT INFORMATION
  Report Type: 
  Country: None (occurrence: None)
  Receive Date: 20100223
  Receipt Date: 20100217
  Transmission Date: 20100710
  Serious: Yes (Disabling)
  Sender: FDA-Public Use
  Company Number: DE-MERCK-0912DEU00051

PATIENT
  Age: 65 Year
  Sex: Female
  Weight: 78 kg

DRUGS (5)
  1. COSOPT [Suspect]
     Indication: INTRAOCULAR PRESSURE INCREASED
     Route: 047
     Dates: start: 20080313, end: 20091126
  2. GINKGO [Concomitant]
     Route: 065
     Dates: start: 20000101
  3. FLUTICASONE PROPIONATE AND SALMETEROL XINAFOATE [Concomitant]
     Route: 055
     Dates: start: 20080101
  4. PANTOPRAZOLE SODIUM [Concomitant]
     Route: 048
     Dates: start: 20060101
  5. PANTOPRAZOLE SODIUM [Concomitant]
     Route: 048
     Dates: start: 20060101

REACTIONS (3)
  - JOINT INJURY [None]
  - MALAISE [None]
  - SYNCOPE [None]
